FAERS Safety Report 25554946 (Version 2)
Quarter: 2025Q3

REPORT INFORMATION
  Report Type: Spontaneous
  Country: US (occurrence: US)
  Receive Date: 20250715
  Receipt Date: 20250904
  Transmission Date: 20251021
  Serious: No
  Sender: GILEAD
  Company Number: US-GILEAD-2025-0720428

PATIENT
  Age: 67 Year
  Sex: Female

DRUGS (1)
  1. LIVDELZI [Suspect]
     Active Substance: SELADELPAR LYSINE
     Indication: Product used for unknown indication
     Route: 065

REACTIONS (3)
  - Blister [Not Recovered/Not Resolved]
  - Hypersensitivity [Not Recovered/Not Resolved]
  - Skin lesion [Not Recovered/Not Resolved]
